FAERS Safety Report 23436335 (Version 1)
Quarter: 2024Q1

REPORT INFORMATION
  Report Type: Spontaneous
  Country: MX (occurrence: MX)
  Receive Date: 20240124
  Receipt Date: 20240124
  Transmission Date: 20240410
  Serious: Yes (Other)
  Sender: FDA-Public Use
  Company Number: MX-GTI-000107

PATIENT
  Age: 77 Year
  Sex: Female

DRUGS (2)
  1. PREDNISONE [Suspect]
     Active Substance: PREDNISONE
     Indication: Arthritis
     Route: 065
  2. BETAMETHASONE\INDOMETHACIN\METHOCARBAMOL [Suspect]
     Active Substance: BETAMETHASONE\INDOMETHACIN\METHOCARBAMOL
     Indication: Arthritis
     Route: 065

REACTIONS (4)
  - Major depression [Recovered/Resolved]
  - Ligament sprain [Recovered/Resolved]
  - Malnutrition [Unknown]
  - Withdrawal syndrome [Recovered/Resolved]
